FAERS Safety Report 4341080-1 (Version None)
Quarter: 2004Q2

REPORT INFORMATION
  Report Type: 
  Country: None (occurrence: None)
  Receive Date: 20040419
  Receipt Date: 20040219
  Transmission Date: 20050107
  Serious: Yes (Other)
  Sender: FDA-Public Use
  Company Number: FR-ROCHE-359444

PATIENT
  Age: 44 Year
  Sex: Male
  Weight: 72 kg

DRUGS (7)
  1. PEGASYS [Suspect]
     Indication: HEPATITIS C
     Route: 058
     Dates: start: 20030722
  2. PEGASYS [Suspect]
     Route: 058
     Dates: start: 20040129
  3. PEGASYS [Suspect]
     Dosage: OVERALL TREATMENT DURATION WITH PEG-INTERFERON ALFA-2A REPORTED TO BE SEVEN MONTHS.
     Route: 058
  4. ALLOPURINOL TAB [Interacting]
     Indication: HYPERURICAEMIA
     Route: 048
     Dates: start: 20031017, end: 20040220
  5. DEROXAT [Interacting]
     Indication: DEPRESSION
     Route: 048
     Dates: start: 20040112
  6. COPEGUS [Concomitant]
     Indication: HEPATITIS C
     Route: 048
     Dates: start: 20030722
  7. MANTADIX [Concomitant]
     Indication: HEPATITIS C
     Route: 048
     Dates: start: 20030722

REACTIONS (2)
  - ALANINE AMINOTRANSFERASE INCREASED [None]
  - DRUG INTERACTION [None]
